FAERS Safety Report 19467056 (Version 1)
Quarter: 2021Q2

REPORT INFORMATION
  Report Type: Spontaneous
  Country: US (occurrence: US)
  Receive Date: 20210628
  Receipt Date: 20210628
  Transmission Date: 20210717
  Serious: Yes (Hospitalization, Other)
  Sender: FDA-Public Use
  Company Number: US-HIKMA PHARMACEUTICALS USA INC.-US-H14001-21-02968

PATIENT
  Age: 71 Year
  Sex: Female

DRUGS (3)
  1. DOPAMINE [Suspect]
     Active Substance: DOPAMINE HYDROCHLORIDE
     Indication: CARDIOGENIC SHOCK
     Dosage: UNKNOWN
     Route: 065
  2. DOPAMINE [Suspect]
     Active Substance: DOPAMINE HYDROCHLORIDE
     Indication: LEFT VENTRICULAR DYSFUNCTION
  3. DOPAMINE [Suspect]
     Active Substance: DOPAMINE HYDROCHLORIDE
     Indication: HYPOTENSION

REACTIONS (5)
  - Condition aggravated [Recovered/Resolved]
  - Ventricular extrasystoles [Recovered/Resolved]
  - Mean arterial pressure decreased [Recovered/Resolved]
  - Left ventricle outflow tract obstruction [Recovered/Resolved]
  - Hypotension [Recovered/Resolved]
